FAERS Safety Report 9022048 (Version 1)
Quarter: 2013Q1

REPORT INFORMATION
  Report Type: Spontaneous
  Country: US (occurrence: US)
  Receive Date: 20130110
  Receipt Date: 20130110
  Transmission Date: 20140127
  Serious: Yes (Death)
  Sender: FDA-Public Use
  Company Number: US-PFIZER INC-2013007247

PATIENT
  Age: 39 Year
  Sex: Male

DRUGS (7)
  1. AMOXICILLIN [Suspect]
     Dosage: UNK
  2. ALPRAZOLAM [Suspect]
  3. AMOXICILLIN [Suspect]
  4. RANITIDINE [Suspect]
  5. TRAZODONE [Suspect]
  6. ACETAMINOPHEN W/HYDROCODONE BITARTRATE [Suspect]
     Dosage: UNK
  7. METHADONE [Suspect]

REACTIONS (3)
  - Death [Fatal]
  - Cardiac arrest [Fatal]
  - Respiratory arrest [Fatal]
